FAERS Safety Report 5689374-1 (Version None)
Quarter: 2008Q1

REPORT INFORMATION
  Report Type: 
  Country: None (occurrence: None)
  Receive Date: 20080331
  Receipt Date: 20080319
  Transmission Date: 20080703
  Serious: Yes (Hospitalization, Other)
  Sender: FDA-Public Use
  Company Number: CR-AMGEN-US265695

PATIENT
  Sex: Male

DRUGS (6)
  1. PANITUMUMAB [Suspect]
     Indication: COLORECTAL CANCER
     Route: 042
     Dates: start: 20070828
  2. FLUOROURACIL [Suspect]
     Indication: COLORECTAL CANCER
     Route: 042
  3. FLUOROURACIL [Suspect]
     Route: 042
  4. ENOXAPARIN SODIUM [Concomitant]
     Route: 042
  5. OXALIPLATIN [Concomitant]
     Route: 042
  6. LEUCOVORIN CALCIUM [Concomitant]
     Route: 042

REACTIONS (3)
  - LOCALISED INTRAABDOMINAL FLUID COLLECTION [None]
  - PNEUMONIA [None]
  - SEPSIS [None]
